FAERS Safety Report 6182702-2 (Version None)
Quarter: 2009Q2

REPORT INFORMATION
  Report Type: 
  Country: None (occurrence: None)
  Receive Date: 20090507
  Receipt Date: 20090428
  Transmission Date: 20091009
  Serious: Yes (Hospitalization)
  Sender: FDA-Public Use
  Company Number: B0572161A

PATIENT
  Sex: Female

DRUGS (2)
  1. FORTUM [Suspect]
     Indication: INFECTION
     Route: 042
     Dates: start: 20090324, end: 20090328
  2. TIENAM [Suspect]
     Indication: INFECTION
     Route: 042
     Dates: start: 20090328, end: 20090403

REACTIONS (1)
  - RASH MACULO-PAPULAR [None]
